FAERS Safety Report 10503513 (Version 3)
Quarter: 2014Q4

REPORT INFORMATION
  Report Type: Spontaneous
  Country: IT (occurrence: IT)
  Receive Date: 20141008
  Receipt Date: 20141014
  Transmission Date: 20150528
  Serious: Yes (Other)
  Sender: FDA-Public Use
  Company Number: IT-AUROBINDO-AUR-APL-2014-07939

PATIENT
  Age: 27 Year
  Sex: Female

DRUGS (2)
  1. CITALOPRAM ORAL DROPS (CITALOPRAM) DROP [Suspect]
     Active Substance: CITALOPRAM HYDROBROMIDE
     Indication: INSOMNIA
     Dosage: 15 GTT, TOTAL
     Route: 048
     Dates: start: 20140615, end: 20140616
  2. TAVOR [Suspect]
     Active Substance: LORAZEPAM
     Indication: INSOMNIA
     Dosage: 17 DF, TOTAL
     Route: 048
     Dates: start: 20140615, end: 20140616

REACTIONS (2)
  - Overdose [Recovering/Resolving]
  - Agitation [Recovering/Resolving]

NARRATIVE: CASE EVENT DATE: 20140615
